FAERS Safety Report 12710518 (Version 2)
Quarter: 2016Q3

REPORT INFORMATION
  Report Type: Spontaneous
  Country: IT (occurrence: IT)
  Receive Date: 20160902
  Receipt Date: 20160909
  Transmission Date: 20161109
  Serious: Yes (Other)
  Sender: FDA-Public Use
  Company Number: IT-TEVA-688045ACC

PATIENT
  Age: 86 Year
  Sex: Female

DRUGS (4)
  1. TALOFEN [Suspect]
     Active Substance: PROMAZINE HYDROCHLORIDE
     Indication: CONDUCT DISORDER
     Dosage: 7 GTT DAILY;
     Route: 048
     Dates: start: 20160101, end: 20160707
  2. TRITTICO - 60 MG/ML GOCCE ORALI SOLUZIONE [Suspect]
     Active Substance: TRAZODONE HYDROCHLORIDE
     Indication: CONDUCT DISORDER
     Dosage: 36 GTT DAILY;
     Route: 048
     Dates: start: 20160101, end: 20160707
  3. TRIATEC - 5 MG COMPRESSE [Concomitant]
     Active Substance: RAMIPRIL
     Indication: PRODUCT USED FOR UNKNOWN INDICATION
     Route: 048
  4. QUETIAPINE. [Suspect]
     Active Substance: QUETIAPINE
     Indication: CONDUCT DISORDER
     Dosage: 2 DOSAGE FORMS DAILY;
     Route: 048
     Dates: start: 20160101, end: 20160707

REACTIONS (4)
  - Agitation [Unknown]
  - Dysstasia [Unknown]
  - Sopor [Unknown]
  - Language disorder [Unknown]

NARRATIVE: CASE EVENT DATE: 20160707
